FAERS Safety Report 6039961-6 (Version None)
Quarter: 2009Q1

REPORT INFORMATION
  Report Type: 
  Country: None (occurrence: None)
  Receive Date: 20090116
  Receipt Date: 20071102
  Transmission Date: 20090719
  Serious: No
  Sender: FDA-Public Use
  Company Number: US-BRISTOL-MYERS SQUIBB COMPANY-13967674

PATIENT
  Age: 50 Year
  Sex: Male

DRUGS (2)
  1. ABILIFY [Suspect]
     Route: 048
  2. ADDERALL 10 [Concomitant]

REACTIONS (1)
  - TARDIVE DYSKINESIA [None]
